FAERS Safety Report 10956823 (Version 1)
Quarter: 2015Q1

REPORT INFORMATION
  Report Type: Spontaneous
  Country: US (occurrence: US)
  Receive Date: 20150326
  Receipt Date: 20150326
  Transmission Date: 20150721
  Serious: No
  Sender: FDA-Public Use
  Company Number: US-MYLANLABS-2015M1002743

PATIENT
  Age: 48 Year
  Sex: Male
  Weight: 71.2 kg

DRUGS (3)
  1. VERAPAMIL [Concomitant]
     Active Substance: VERAPAMIL HYDROCHLORIDE
     Dosage: UNK
  2. LITHIUM [Concomitant]
     Active Substance: LITHIUM CARBONATE
     Dosage: UNK
  3. EMSAM [Suspect]
     Active Substance: SELEGILINE
     Indication: MAJOR DEPRESSION
     Dosage: 9 MG, QD, CHANGED Q24H
     Route: 062
     Dates: start: 20141207

REACTIONS (1)
  - Influenza like illness [Not Recovered/Not Resolved]

NARRATIVE: CASE EVENT DATE: 20150121
